FAERS Safety Report 18786132 (Version 1)
Quarter: 2021Q1

REPORT INFORMATION
  Report Type: Spontaneous
  Country: US (occurrence: US)
  Receive Date: 20210125
  Receipt Date: 20210125
  Transmission Date: 20210419
  Serious: Yes (Hospitalization)
  Sender: FDA-Public Use
  Company Number: None

PATIENT
  Age: 78 Year
  Sex: Male

DRUGS (12)
  1. TACROLIMUS. [Suspect]
     Active Substance: TACROLIMUS
     Indication: RENAL TRANSPLANT
     Route: 048
     Dates: start: 20180828
  2. HUMALOG [Concomitant]
     Active Substance: INSULIN LISPRO
  3. MAGNESIUM [Concomitant]
     Active Substance: MAGNESIUM
  4. ALLOPURINOL. [Concomitant]
     Active Substance: ALLOPURINOL
  5. TACROMLMUS [Concomitant]
  6. FOLIC ACID. [Concomitant]
     Active Substance: FOLIC ACID
  7. NIFEDIPINE. [Concomitant]
     Active Substance: NIFEDIPINE
  8. POTASSIUM [Concomitant]
     Active Substance: POTASSIUM
  9. VITAMIN D [Concomitant]
     Active Substance: VITAMIN D NOS
  10. ASPIRIN. [Concomitant]
     Active Substance: ASPIRIN
  11. FLOMAX [Concomitant]
     Active Substance: TAMSULOSIN HYDROCHLORIDE
  12. SIMVASTATION [Concomitant]

REACTIONS (1)
  - Kidney infection [None]

NARRATIVE: CASE EVENT DATE: 20210120
